FAERS Safety Report 16305767 (Version 3)
Quarter: 2019Q2

REPORT INFORMATION
  Report Type: Spontaneous
  Country: JP (occurrence: JP)
  Receive Date: 20190513
  Receipt Date: 20190531
  Transmission Date: 20190711
  Serious: Yes (Death)
  Sender: FDA-Public Use
  Company Number: JP-ELI_LILLY_AND_COMPANY-JP201905002790AA

PATIENT
  Sex: Female
  Weight: 47 kg

DRUGS (2)
  1. ARIMIDEX [Suspect]
     Active Substance: ANASTROZOLE
     Indication: BREAST CANCER RECURRENT
     Dosage: UNK
     Route: 048
     Dates: start: 20181201, end: 20190505
  2. VERZENIO [Suspect]
     Active Substance: ABEMACICLIB
     Indication: BREAST CANCER RECURRENT
     Dosage: 150 MG, BID
     Route: 048
     Dates: start: 20181201, end: 20190505

REACTIONS (1)
  - Interstitial lung disease [Fatal]

NARRATIVE: CASE EVENT DATE: 20190506
